FAERS Safety Report 9955916 (Version 2)
Quarter: 2014Q1

REPORT INFORMATION
  Report Type: Report from Study
  Country: US (occurrence: US)
  Receive Date: 20140304
  Receipt Date: 20140304
  Transmission Date: 20141002
  Serious: No
  Sender: FDA-Public Use
  Company Number: US-ABBVIE-13P-163-1068826-00

PATIENT
  Age: 28 Year
  Sex: Female

DRUGS (1)
  1. HUMIRA [Suspect]
     Indication: CROHN^S DISEASE
     Dates: start: 20130104

REACTIONS (4)
  - Injection site pain [Recovered/Resolved]
  - Abdominal pain [Unknown]
  - Hypertrophic scar [Unknown]
  - Constipation [Unknown]
